FAERS Safety Report 6434331-0 (Version None)
Quarter: 2009Q4

REPORT INFORMATION
  Report Type: 
  Country: None (occurrence: None)
  Receive Date: 20091110
  Receipt Date: 20081029
  Transmission Date: 20100525
  Serious: No
  Sender: FDA-Public Use
  Company Number: US-ASTRAZENECA-2009SE12367

PATIENT
  Age: 66 Year
  Sex: Female

DRUGS (2)
  1. PRILOSEC OTC [Suspect]
     Indication: GASTROOESOPHAGEAL REFLUX DISEASE
     Route: 048
     Dates: start: 20081028, end: 20081028
  2. BARIUM [Concomitant]
     Indication: BARIUM SWALLOW

REACTIONS (2)
  - DIARRHOEA [None]
  - DRUG ADMINISTRATION ERROR [None]
